FAERS Safety Report 9827327 (Version 1)
Quarter: 2014Q1

REPORT INFORMATION
  Report Type: Spontaneous
  Country: BR (occurrence: BR)
  Receive Date: 20140117
  Receipt Date: 20140117
  Transmission Date: 20141002
  Serious: Yes (Hospitalization, Other)
  Sender: FDA-Public Use
  Company Number: BR-PFIZER INC-2014009631

PATIENT
  Age: 75 Year
  Sex: Female

DRUGS (1)
  1. XALATAN [Suspect]
     Indication: GLAUCOMA
     Dosage: 3 UG, 1 DROP IN EACH EYE 1X/DAY
     Route: 047
     Dates: start: 20120110

REACTIONS (2)
  - Cataract [Unknown]
  - Drug ineffective [Unknown]
